FAERS Safety Report 15299792 (Version 1)
Quarter: 2018Q3

REPORT INFORMATION
  Report Type: Spontaneous
  Country: US (occurrence: US)
  Receive Date: 20180821
  Receipt Date: 20180821
  Transmission Date: 20181010
  Serious: Yes (Other)
  Sender: FDA-Public Use
  Company Number: US-DRREDDYS-USA/USA/18/0103198

PATIENT
  Age: 92 Year
  Sex: Male

DRUGS (3)
  1. AUGMENTIN [Suspect]
     Active Substance: AMOXICILLIN\CLAVULANATE POTASSIUM
     Indication: PRODUCTIVE COUGH
     Route: 065
  2. ALEVE [Concomitant]
     Active Substance: NAPROXEN SODIUM
     Indication: PAIN
     Route: 065
  3. AUGMENTIN [Suspect]
     Active Substance: AMOXICILLIN\CLAVULANATE POTASSIUM
     Indication: SECRETION DISCHARGE

REACTIONS (16)
  - Diarrhoea [Not Recovered/Not Resolved]
  - Constipation [Unknown]
  - Sputum discoloured [Not Recovered/Not Resolved]
  - Discomfort [Not Recovered/Not Resolved]
  - Dyspnoea exertional [Unknown]
  - Weight decreased [Unknown]
  - Pain [Unknown]
  - Respiratory tract infection [Unknown]
  - Peripheral swelling [Not Recovered/Not Resolved]
  - Upper respiratory tract infection [Recovered/Resolved]
  - Rash generalised [Unknown]
  - Pruritus [Unknown]
  - Rash pruritic [Unknown]
  - Hypertension [Unknown]
  - Insomnia [Unknown]
  - Pollakiuria [Unknown]
